FAERS Safety Report 13455945 (Version 1)
Quarter: 2017Q2

REPORT INFORMATION
  Report Type: Report from Study
  Country: JP (occurrence: JP)
  Receive Date: 20170419
  Receipt Date: 20170419
  Transmission Date: 20170830
  Serious: Yes (Other)
  Sender: FDA-Public Use
  Company Number: JP-IPCA LABORATORIES LIMITED-IPC201704-000502

PATIENT

DRUGS (1)
  1. HYDROXYCHLOROQUINE SULFATE. [Suspect]
     Active Substance: HYDROXYCHLOROQUINE SULFATE
     Indication: CUTANEOUS LUPUS ERYTHEMATOSUS

REACTIONS (1)
  - Meningitis pneumococcal [Unknown]
